FAERS Safety Report 9029832 (Version 1)
Quarter: 2013Q1

REPORT INFORMATION
  Report Type: Spontaneous
  Country: US (occurrence: US)
  Receive Date: 20130124
  Receipt Date: 20130124
  Transmission Date: 20140127
  Serious: Yes (Other)
  Sender: FDA-Public Use
  Company Number: CHPA2013US001415

PATIENT
  Age: 70 Year
  Sex: Female

DRUGS (2)
  1. EXCEDRIN MIGRAINE [Suspect]
     Indication: MIGRAINE
     Dosage: 2 DF, BID
     Route: 048
     Dates: start: 1998
  2. EXCEDRIN MIGRAINE [Suspect]
     Indication: MIGRAINE
     Dosage: 2 DF, BID
     Route: 048
     Dates: start: 1998

REACTIONS (5)
  - Thermal burn [Unknown]
  - Wound [Unknown]
  - Burning sensation [Recovered/Resolved]
  - Medication overuse headache [Unknown]
  - Overdose [Unknown]
